FAERS Safety Report 11505728 (Version 1)
Quarter: 2015Q3

REPORT INFORMATION
  Report Type: Spontaneous
  Country: US (occurrence: US)
  Receive Date: 20150915
  Receipt Date: 20150915
  Transmission Date: 20151125
  Serious: Yes (Life-Threatening, Hospitalization)
  Sender: FDA-Public Use
  Company Number: US-ROCHE-776242

PATIENT
  Age: 51 Year
  Sex: Female
  Weight: 40.8 kg

DRUGS (2)
  1. PEGASYS [Suspect]
     Active Substance: PEGINTERFERON ALFA-2A
     Indication: HEPATITIS C
     Route: 058
     Dates: start: 20110418, end: 20110504
  2. COPEGUS [Concomitant]
     Active Substance: RIBAVIRIN
     Route: 048

REACTIONS (3)
  - Pancytopenia [Unknown]
  - Hypertension [Unknown]
  - Weight decreased [Unknown]

NARRATIVE: CASE EVENT DATE: 20110504
